FAERS Safety Report 5560133-3 (Version None)
Quarter: 2007Q4

REPORT INFORMATION
  Report Type: 
  Country: None (occurrence: None)
  Receive Date: 20071214
  Receipt Date: 20071024
  Transmission Date: 20080405
  Serious: No
  Sender: FDA-Public Use
  Company Number: US-ABBOTT-07P-163-0422275-00

PATIENT
  Sex: Female
  Weight: 92.162 kg

DRUGS (6)
  1. HUMIRA [Suspect]
     Indication: RHEUMATOID ARTHRITIS
     Route: 058
     Dates: start: 20070101
  2. FERROUS SULFATE TAB [Concomitant]
     Indication: MINERAL SUPPLEMENTATION
     Route: 048
  3. HYDROCHLOROTHIAZIDE [Concomitant]
     Indication: DIURETIC THERAPY
     Route: 048
  4. MELOXICAM [Concomitant]
     Indication: INFLAMMATION
     Route: 048
  5. VITAMIN E [Concomitant]
     Indication: MEDICAL DIET
     Route: 048
  6. NORMENSAL [Concomitant]
     Indication: CONTRACEPTION
     Route: 048

REACTIONS (1)
  - WEIGHT INCREASED [None]
